FAERS Safety Report 5380714-X (Version None)
Quarter: 2007Q2

REPORT INFORMATION
  Report Type: 
  Country: None (occurrence: None)
  Receive Date: 20070530
  Receipt Date: 20070222
  Transmission Date: 20071010
  Serious: No
  Sender: FDA-Public Use
  Company Number: 2007PV030514

PATIENT
  Age: 72 Year
  Sex: Female
  Weight: 79.3795 kg

DRUGS (4)
  1. BYETTA [Suspect]
     Indication: DIABETES MELLITUS NON-INSULIN-DEPENDENT
     Dosage: 5 MCG;BID;SC; 10 MCG;BID;SC; 5 MCG;BID;SC
     Route: 058
     Dates: start: 20070114, end: 20070101
  2. BYETTA [Suspect]
     Indication: DIABETES MELLITUS NON-INSULIN-DEPENDENT
     Dosage: 5 MCG;BID;SC; 10 MCG;BID;SC; 5 MCG;BID;SC
     Route: 058
     Dates: start: 20060101
  3. BYETTA [Suspect]
     Indication: DIABETES MELLITUS NON-INSULIN-DEPENDENT
     Dosage: 5 MCG;BID;SC; 10 MCG;BID;SC; 5 MCG;BID;SC
     Route: 058
     Dates: start: 20070101
  4. GLUCOPHAGE [Concomitant]

REACTIONS (8)
  - BALANCE DISORDER [None]
  - BLOOD GLUCOSE INCREASED [None]
  - DEAFNESS UNILATERAL [None]
  - DEFAECATION URGENCY [None]
  - EAR DISCOMFORT [None]
  - MIDDLE EAR EFFUSION [None]
  - STOMACH DISCOMFORT [None]
  - TINNITUS [None]
